FAERS Safety Report 13671458 (Version 1)
Quarter: 2017Q2

REPORT INFORMATION
  Report Type: Spontaneous
  Country: US (occurrence: US)
  Receive Date: 20170620
  Receipt Date: 20170620
  Transmission Date: 20170830
  Serious: Yes (Other)
  Sender: FDA-Public Use
  Company Number: None

PATIENT
  Age: 68 Year
  Sex: Female
  Weight: 79.9 kg

DRUGS (5)
  1. LATANOPROST 0.005% OPTH SOLN 2.5ML [Suspect]
     Active Substance: LATANOPROST
     Indication: GLAUCOMA
     Dosage: QUANTITY:5W? NO: FLAK-I SOLARL^? ONE TIME AT BEDTIME??
     Route: 031
     Dates: start: 20170607, end: 20170611
  2. PROPAFENONE. [Concomitant]
     Active Substance: PROPAFENONE
  3. POTASSIUM [Concomitant]
     Active Substance: POTASSIUM
  4. LASIX [Concomitant]
     Active Substance: FUROSEMIDE
  5. RESTORIL [Concomitant]
     Active Substance: TEMAZEPAM

REACTIONS (3)
  - Foreign body sensation in eyes [None]
  - Eye irritation [None]
  - Vision blurred [None]

NARRATIVE: CASE EVENT DATE: 201706
